FAERS Safety Report 17002995 (Version 1)
Quarter: 2019Q4

REPORT INFORMATION
  Report Type: Spontaneous
  Country: DK (occurrence: DK)
  Receive Date: 20191107
  Receipt Date: 20191107
  Transmission Date: 20200122
  Serious: Yes (Hospitalization, Other)
  Sender: FDA-Public Use
  Company Number: DK-TEVA-2019-DK-1131739

PATIENT
  Age: 40 Year
  Sex: Male

DRUGS (4)
  1. SERTRALIN TEVA [Interacting]
     Active Substance: SERTRALINE HYDROCHLORIDE
     Indication: POST-TRAUMATIC STRESS DISORDER
     Dosage: STRENGTH: 100 MG (100 MG PER DAY)
     Route: 048
     Dates: start: 201906
  2. OXYCODONE TEVA [Suspect]
     Active Substance: OXYCODONE HYDROCHLORIDE
     Indication: PAIN
     Dosage: STRENGTH: 10 MG (120 MG PER DAY)
     Route: 048
     Dates: start: 201909
  3. KLORZOXAZON DAK [Concomitant]
     Active Substance: CHLORZOXAZONE
     Indication: MUSCLE RELAXANT THERAPY
     Dosage: STRENGTH: 250 MG (1000 MG PER DAY)
     Route: 048
     Dates: start: 20180907
  4. GABAPENTIN. [Concomitant]
     Active Substance: GABAPENTIN
     Indication: NEURALGIA
     Dosage: STRENGTH: 400 MG (2400 MG PER DAY)
     Route: 048
     Dates: start: 20181003

REACTIONS (5)
  - Serotonin syndrome [Not Recovered/Not Resolved]
  - Clonus [Not Recovered/Not Resolved]
  - Tremor [Not Recovered/Not Resolved]
  - Drug interaction [Unknown]
  - Muscle rigidity [Not Recovered/Not Resolved]

NARRATIVE: CASE EVENT DATE: 20191002
